FAERS Safety Report 16920561 (Version 1)
Quarter: 2019Q4

REPORT INFORMATION
  Report Type: Spontaneous
  Country: GB (occurrence: GB)
  Receive Date: 20191015
  Receipt Date: 20191015
  Transmission Date: 20200122
  Serious: Yes (Other)
  Sender: FDA-Public Use
  Company Number: GB-MYLANLABS-2019M1096682

PATIENT
  Age: 57 Year
  Sex: Female
  Weight: 65 kg

DRUGS (14)
  1. CLARITHROMYCIN. [Suspect]
     Active Substance: CLARITHROMYCIN
     Indication: PRODUCT USED FOR UNKNOWN INDICATION
     Dosage: 500 MILLIGRAM, BID
     Dates: start: 20190708, end: 20190709
  2. DOXYCYCLINE. [Concomitant]
     Active Substance: DOXYCYCLINE
     Dosage: TWO NOW THEN ONE DAILY
     Dates: start: 20190709
  3. OMEPRAZOLE. [Concomitant]
     Active Substance: OMEPRAZOLE
     Dosage: 1 DOSAGE FORM, QD
     Dates: start: 20180702
  4. TRIMBOW [Concomitant]
     Active Substance: BECLOMETHASONE DIPROPIONATE\FORMOTEROL FUMARATE\GLYCOPYRROLATE
     Dosage: 4 DOSAGE FORM, QD(PUFFS)
     Dates: start: 20190212
  5. ZAPAIN [Concomitant]
     Active Substance: ACETAMINOPHEN\CODEINE PHOSPHATE
     Dosage: TAKE ONE OR TWO FOUR TIMES/DAY
     Dates: start: 20180702, end: 20190607
  6. ROSUVASTATIN. [Concomitant]
     Active Substance: ROSUVASTATIN
     Dosage: 1 DOSAGE FORM, QD
     Dates: start: 20180702
  7. COCODAMOL [Concomitant]
     Active Substance: ACETAMINOPHEN\CODEINE PHOSPHATE
     Dosage: TAKE ONE OR TWO FOUR TIMES/DAY
     Dates: start: 20190607
  8. RAMIPRIL. [Concomitant]
     Active Substance: RAMIPRIL
     Dosage: 1 DOSAGE FORM, QD
     Dates: start: 20190423
  9. NASEPTIN [Concomitant]
     Active Substance: CHLORHEXIDINE HYDROCHLORIDE\NEOMYCIN SULFATE
     Dosage: APPLY AS DIRECTED
     Dates: start: 20190626, end: 20190627
  10. NITROFURANTOIN. [Concomitant]
     Active Substance: NITROFURANTOIN
     Dosage: AS DIRECTED
     Dates: start: 20180702
  11. VENTOLIN [Concomitant]
     Active Substance: ALBUTEROL SULFATE
     Dosage: 2 DOSAGE FORM, PRN
     Route: 055
     Dates: start: 20131104
  12. PROPRANOLOL [Concomitant]
     Active Substance: PROPRANOLOL HYDROCHLORIDE
     Dosage: 1 DOSAGE FORM, QD
     Dates: start: 20021011
  13. ACICLOVIR [Concomitant]
     Active Substance: ACYCLOVIR
     Dosage: 2 DOSAGE FORM, QD
     Dates: start: 20190626
  14. LERCANIDIPINE HYDROCHLORIDE [Concomitant]
     Active Substance: LERCANIDIPINE HYDROCHLORIDE
     Dosage: 1 DOSAGE FORM, QD
     Dates: start: 20190423

REACTIONS (2)
  - Tachycardia [Unknown]
  - Diarrhoea [Recovering/Resolving]

NARRATIVE: CASE EVENT DATE: 20190709
